FAERS Safety Report 12309650 (Version 1)
Quarter: 2016Q2

REPORT INFORMATION
  Report Type: Report from Study
  Country: CA (occurrence: CA)
  Receive Date: 20160427
  Receipt Date: 20160427
  Transmission Date: 20160815
  Serious: Yes (Other)
  Sender: FDA-Public Use
  Company Number: CA-AMGEN-CANSL2016047560

PATIENT
  Age: 62 Year
  Sex: Female

DRUGS (8)
  1. HALDOL [Concomitant]
     Active Substance: HALOPERIDOL
  2. SINEQUAN [Concomitant]
     Active Substance: DOXEPIN HYDROCHLORIDE
  3. IRON [Concomitant]
     Active Substance: IRON
  4. PROLIA [Suspect]
     Active Substance: DENOSUMAB
     Indication: PRODUCT USED FOR UNKNOWN INDICATION
     Dosage: UNK
     Route: 065
     Dates: start: 20131001
  5. SEROQUEL [Concomitant]
     Active Substance: QUETIAPINE FUMARATE
  6. LYRIC [Concomitant]
  7. CALCIUM [Concomitant]
     Active Substance: CALCIUM
  8. ASA [Concomitant]
     Active Substance: ASPIRIN

REACTIONS (2)
  - Spinal fracture [Unknown]
  - No therapeutic response [Unknown]
